FAERS Safety Report 7451037-X (Version None)
Quarter: 2011Q2

REPORT INFORMATION
  Report Type: 
  Country: None (occurrence: None)
  Receive Date: 20110502
  Receipt Date: 20110428
  Transmission Date: 20111010
  Serious: Yes (Death)
  Sender: FDA-Public Use
  Company Number: IE-ROCHE-773791

PATIENT
  Sex: Male

DRUGS (4)
  1. ASPIRIN [Concomitant]
  2. DIOVAN [Concomitant]
  3. LIPITOR [Concomitant]
  4. XELODA [Suspect]
     Route: 048
     Dates: start: 20100901

REACTIONS (1)
  - DEATH [None]
